FAERS Safety Report 4803306-7 (Version None)
Quarter: 2005Q3

REPORT INFORMATION
  Report Type: 
  Country: None (occurrence: None)
  Receive Date: 20050929
  Receipt Date: 20050810
  Transmission Date: 20060218
  Serious: No
  Sender: FDA-Public Use
  Company Number: 05P-163-0308044-00

PATIENT
  Age: 76 Year
  Sex: Female
  Weight: 54.4316 kg

DRUGS (8)
  1. HUMIRA [Suspect]
     Indication: RHEUMATOID ARTHRITIS
     Dosage: 40 MG, SUBCUTANEOUS
     Route: 058
     Dates: start: 20030101, end: 20050701
  2. METHOTREXATE [Concomitant]
  3. PANTOPRAZOLE [Concomitant]
  4. PREDNISONE [Concomitant]
  5. PROCHLORPER [Concomitant]
  6. OXYCODONE [Concomitant]
  7. ZOLPIDEM TARTRATE [Concomitant]
  8. EMEND [Concomitant]

REACTIONS (1)
  - LYMPHOMA [None]
